FAERS Safety Report 7169732-9 (Version None)
Quarter: 2010Q4

REPORT INFORMATION
  Report Type: 
  Country: None (occurrence: None)
  Receive Date: 20101206
  Receipt Date: 20101123
  Transmission Date: 20110411
  Serious: Yes (Disabling)
  Sender: FDA-Public Use
  Company Number: DSA_44158_2010

PATIENT
  Sex: Female

DRUGS (6)
  1. BUPROPION HYDROCHLORIDE [Suspect]
     Indication: PRODUCT USED FOR UNKNOWN INDICATION
     Dosage: 150 MG DAILY ORAL
     Route: 048
     Dates: start: 20100101
  2. SEROPRAM [Concomitant]
  3. CHONDROSULF [Concomitant]
  4. IBUPROFEN [Concomitant]
  5. ASPIRIN [Concomitant]
  6. MULTI-VITAMINS [Concomitant]

REACTIONS (3)
  - RETINAL PIGMENT EPITHELIOPATHY [None]
  - VIRAL INFECTION [None]
  - VISUAL ACUITY REDUCED [None]
